FAERS Safety Report 6983691-0 (Version None)
Quarter: 2010Q3

REPORT INFORMATION
  Report Type: 
  Country: None (occurrence: None)
  Receive Date: 20100914
  Receipt Date: 20080812
  Transmission Date: 20110219
  Serious: Yes (Life-Threatening, Hospitalization)
  Sender: FDA-Public Use
  Company Number: US-WYE-H07076208

PATIENT
  Age: 14 Year
  Sex: Male
  Weight: 75.09 kg

DRUGS (2)
  1. ADVIL LIQUI-GELS [Suspect]
     Indication: INTENTIONAL OVERDOSE
     Dosage: 200 MG, FREQUENCY UNKNOWN
     Route: 048
  2. ADVIL LIQUI-GELS [Suspect]
     Dosage: 200MG, 500 TABLETS X 1
     Route: 048

REACTIONS (4)
  - GASTROINTESTINAL HAEMORRHAGE [None]
  - INTENTIONAL OVERDOSE [None]
  - PULMONARY HAEMORRHAGE [None]
  - RENAL FAILURE [None]
